FAERS Safety Report 19490050 (Version 1)
Quarter: 2021Q3

REPORT INFORMATION
  Report Type: Other
  Country: DE (occurrence: DE)
  Receive Date: 20210705
  Receipt Date: 20210705
  Transmission Date: 20211014
  Serious: Yes (Other)
  Sender: FDA-Public Use
  Company Number: DE-CELLTRION INC.-2021DE008773

PATIENT

DRUGS (10)
  1. HERZUMA [Suspect]
     Active Substance: TRASTUZUMAB-PKRB
     Dosage: 8 MG/KG EVERY 3 WEEKS (IN COMBINATION WITH PERJETA AND DOCETAXEL)
     Route: 042
     Dates: start: 20210203
  2. HERZUMA [Suspect]
     Active Substance: TRASTUZUMAB-PKRB
     Indication: HER2 POSITIVE BREAST CANCER
     Dosage: 8 MG/KG EVERY 3 WEEKS (IN COMBINATION WITH PERJETA AND DOCETAXEL)
     Route: 042
     Dates: start: 20210113
  3. EPIRUBICIN [Suspect]
     Active Substance: EPIRUBICIN
     Indication: HER2 POSITIVE BREAST CANCER
     Dosage: COMBINATION WITH CYCLOPHOSPHAMID
     Route: 065
  4. ALOXI [Concomitant]
     Active Substance: PALONOSETRON HYDROCHLORIDE
     Indication: PROPHYLAXIS OF NAUSEA AND VOMITING
     Dosage: 0.25 MG, EVERY 3 WEEKS
     Route: 042
     Dates: start: 20210113
  5. PERJETA [Suspect]
     Active Substance: PERTUZUMAB
     Indication: HER2 POSITIVE BREAST CANCER
     Dosage: 840 MG, EVERY 3 WEEKS (IN COMBINATION WITH HERZUMA AND DOCETAXEL)
     Route: 042
     Dates: start: 20210113
  6. DEXAMETHASONE. [Concomitant]
     Active Substance: DEXAMETHASONE
     Indication: PROPHYLAXIS OF NAUSEA AND VOMITING
     Dosage: 8 MG, EVERY 3 WEEKS
     Route: 042
     Dates: start: 20210113
  7. CYCLOPHOSPHAMID [Suspect]
     Active Substance: CYCLOPHOSPHAMIDE
     Indication: HER2 POSITIVE BREAST CANCER
     Dosage: COMBINATION WITH EPIRUBICIN
     Route: 065
  8. DOCETAXEL. [Suspect]
     Active Substance: DOCETAXEL
     Dosage: 75 MG/M2, EVERY 3 WEEKS (IN COMBINATION WITH PERJETA AND HERZUMA)
     Route: 042
     Dates: start: 20210203
  9. PERJETA [Suspect]
     Active Substance: PERTUZUMAB
     Dosage: 840 MG, EVERY 3 WEEKS (IN COMBINATION WITH HERZUMA AND DOCETAXEL)
     Route: 042
     Dates: start: 20210203
  10. DOCETAXEL. [Suspect]
     Active Substance: DOCETAXEL
     Indication: HER2 POSITIVE BREAST CANCER
     Dosage: 75 MG/M2, EVERY 3 WEEKS (IN COMBINATION WITH PERJETA AND HERZUMA)
     Route: 042
     Dates: start: 20210113

REACTIONS (4)
  - Overdose [Unknown]
  - Retinal haemorrhage [Recovering/Resolving]
  - Off label use [Unknown]
  - Retinal tear [Recovering/Resolving]

NARRATIVE: CASE EVENT DATE: 20210122
